FAERS Safety Report 6666167-X (Version None)
Quarter: 2010Q2

REPORT INFORMATION
  Report Type: 
  Country: None (occurrence: None)
  Receive Date: 20100402
  Receipt Date: 20100330
  Transmission Date: 20101027
  Serious: Yes (Hospitalization)
  Sender: FDA-Public Use
  Company Number: DE-MERCK-0911DEU00088

PATIENT
  Age: 61 Year
  Sex: Female
  Weight: 90 kg

DRUGS (4)
  1. JANUMET [Suspect]
     Indication: TYPE 2 DIABETES MELLITUS
     Route: 048
     Dates: start: 20090501, end: 20091124
  2. RASILEZ [Suspect]
     Indication: HYPERTENSION
     Route: 048
     Dates: start: 20090501, end: 20091124
  3. DECORTIN [Concomitant]
     Indication: THROMBOCYTOPENIA
     Route: 048
  4. BISOPROLOL [Concomitant]
     Indication: HYPERTENSION
     Route: 048

REACTIONS (1)
  - THROMBOCYTOPENIA [None]
